FAERS Safety Report 8066469 (Version 3)
Quarter: 2012Q4

REPORT INFORMATION
  Report Type: 
  Country: US (occurrence: US)
  Receive Date: 20110803
  Receipt Date: 20120911
  Transmission Date: 20130627
  Serious: No
  Sender: FDA-Public Use
  Company Number: US-B.I. PHARMACEUTICALS,INC./RIDGEFIELD-2011-BP-18410BP

PATIENT
  Sex: Male

DRUGS (2)
  1. ZANTAC 150 (RANITIDINE HYDROCHLORIDE) [Suspect]
     Indication: FLATULENCE
     Dosage: 300 mg
  2. ZANTAC 150 (RANITIDINE HYDROCHLORIDE) [Suspect]
     Indication: GASTROOESOPHAGEAL REFLUX DISEASE

REACTIONS (4)
  - Drug ineffective [Recovered/Resolved]
  - Flatulence [Recovered/Resolved]
  - Gastrooesophageal reflux disease [Recovered/Resolved]
  - Drug ineffective [Unknown]
